FAERS Safety Report 5382403-4 (Version None)
Quarter: 2007Q3

REPORT INFORMATION
  Report Type: 
  Country: None (occurrence: None)
  Receive Date: 20070709
  Receipt Date: 20070629
  Transmission Date: 20080115
  Serious: Yes (Hospitalization)
  Sender: FDA-Public Use
  Company Number: JP-MERCK-0704USA05400

PATIENT
  Age: 6 Year
  Sex: Female

DRUGS (14)
  1. SINGULAIR [Suspect]
     Route: 048
     Dates: start: 20070413, end: 20070414
  2. MUCODYNE [Suspect]
     Indication: NASOPHARYNGITIS
     Route: 048
     Dates: start: 20070405
  3. MUCODYNE [Suspect]
     Indication: BRONCHITIS
     Route: 048
     Dates: start: 20070405
  4. CLARITHROMYCIN [Suspect]
     Route: 048
     Dates: start: 20070405
  5. CALONAL [Suspect]
     Route: 048
     Dates: start: 20070405
  6. CALONAL [Suspect]
     Route: 048
     Dates: start: 20070414
  7. LOXONIN [Suspect]
     Route: 048
     Dates: start: 20070413
  8. FLOMOX [Suspect]
     Route: 048
     Dates: start: 20070413
  9. FLOMOX [Suspect]
     Route: 048
     Dates: start: 20070414
  10. HOKUNALIN [Suspect]
     Route: 065
     Dates: start: 20070413
  11. ACYCLOVIR [Concomitant]
     Route: 048
     Dates: start: 20070414
  12. SENECA SNAKEROOT [Concomitant]
     Route: 048
     Dates: start: 20070414
  13. LIGHTGEN SYRUP T [Concomitant]
     Route: 048
     Dates: start: 20070414
  14. PL GRAN [Concomitant]
     Route: 048
     Dates: start: 20070414

REACTIONS (1)
  - STEVENS-JOHNSON SYNDROME [None]
